FAERS Safety Report 5311224-3 (Version None)
Quarter: 2007Q2

REPORT INFORMATION
  Report Type: 
  Country: None (occurrence: None)
  Receive Date: 20070430
  Receipt Date: 20070419
  Transmission Date: 20071010
  Serious: Yes (Other)
  Sender: FDA-Public Use
  Company Number: PHRM2007FR01349

PATIENT
  Age: 55 Year
  Sex: Female

DRUGS (1)
  1. VOLTAREN [Suspect]
     Dosage: 75 MG/DAY
     Route: 048

REACTIONS (2)
  - ABDOMINAL DISCOMFORT [None]
  - HAEMATOCHEZIA [None]
